FAERS Safety Report 18474276 (Version 2)
Quarter: 2021Q2

REPORT INFORMATION
  Report Type: Report from Study
  Country: US (occurrence: US)
  Receive Date: 20201106
  Receipt Date: 20210615
  Transmission Date: 20210717
  Serious: No
  Sender: FDA-Public Use
  Company Number: NVSC2020US298825

PATIENT
  Age: 76 Year
  Sex: Male

DRUGS (1)
  1. ENTRESTO [Suspect]
     Active Substance: SACUBITRIL\VALSARTAN
     Indication: CARDIAC FAILURE CONGESTIVE
     Dosage: 49 MG, BID
     Route: 048
     Dates: start: 20201008

REACTIONS (2)
  - Therapy non-responder [Not Recovered/Not Resolved]
  - Stress [Recovered/Resolved]

NARRATIVE: CASE EVENT DATE: 20201027
